FAERS Safety Report 12657911 (Version 1)
Quarter: 2016Q3

REPORT INFORMATION
  Report Type: Report from Study
  Country: FR (occurrence: FR)
  Receive Date: 20160817
  Receipt Date: 20160817
  Transmission Date: 20161109
  Serious: Yes (Other)
  Sender: FDA-Public Use
  Company Number: FR-ROCHE-1814063

PATIENT
  Age: 18 Year
  Sex: Male

DRUGS (1)
  1. SOMATROPIN [Suspect]
     Active Substance: SOMATROPIN
     Indication: GROWTH HORMONE DEFICIENCY
     Dosage: 10 MG PER 2 ML
     Route: 058
     Dates: start: 201303, end: 20151209

REACTIONS (1)
  - Craniopharyngioma [Recovered/Resolved]

NARRATIVE: CASE EVENT DATE: 201511
